FAERS Safety Report 22229172 (Version 1)
Quarter: 2023Q2

REPORT INFORMATION
  Report Type: Spontaneous
  Country: US (occurrence: US)
  Receive Date: 20230419
  Receipt Date: 20230419
  Transmission Date: 20230721
  Serious: No
  Sender: FDA-Public Use
  Company Number: US-ALLERGAN-2208615US

PATIENT
  Age: 77 Year
  Sex: Female

DRUGS (2)
  1. RESTASIS [Suspect]
     Active Substance: CYCLOSPORINE
     Indication: Dry eye
     Dosage: 2 GTT, QD
     Route: 047
     Dates: start: 20220305
  2. RESTASIS [Suspect]
     Active Substance: CYCLOSPORINE
     Indication: Blepharitis

REACTIONS (3)
  - Wrong technique in product usage process [Unknown]
  - Off label use [Unknown]
  - Eye irritation [Recovered/Resolved]

NARRATIVE: CASE EVENT DATE: 20220310
